FAERS Safety Report 5167050-1 (Version None)
Quarter: 2006Q4

REPORT INFORMATION
  Report Type: 
  Country: None (occurrence: None)
  Receive Date: 20061129
  Receipt Date: 20061019
  Transmission Date: 20070319
  Serious: No
  Sender: FDA-Public Use
  Company Number: 2006-147239-NL

PATIENT
  Age: 31 Year
  Sex: Female

DRUGS (2)
  1. NUVARING [Suspect]
     Indication: CONTRACEPTION
     Dosage: DF VAGINAL
     Route: 067
     Dates: start: 20060607, end: 20060809
  2. MULTI-VITAMIN [Concomitant]

REACTIONS (2)
  - NAUSEA [None]
  - UTERINE LEIOMYOMA [None]
